FAERS Safety Report 9114772 (Version 1)
Quarter: 2013Q1

REPORT INFORMATION
  Report Type: Spontaneous
  Country: US (occurrence: US)
  Receive Date: 20130129
  Receipt Date: 20130129
  Transmission Date: 20140127
  Serious: No
  Sender: FDA-Public Use
  Company Number: US-PFIZER INC-2013033052

PATIENT
  Age: 60 Year
  Sex: Female

DRUGS (2)
  1. ESTRING [Suspect]
     Dosage: 2 MG, EVERY 3 MONTHS
     Route: 067
     Dates: start: 20090821
  2. PROGESTERONE [Concomitant]
     Dosage: UNK, EVERY THREE MONTHS
     Route: 048

REACTIONS (3)
  - Product quality issue [Unknown]
  - Burning sensation [Recovered/Resolved]
  - Vulvovaginal discomfort [Recovered/Resolved]
